FAERS Safety Report 6757858-0 (Version None)
Quarter: 2010Q2

REPORT INFORMATION
  Report Type: 
  Country: None (occurrence: None)
  Receive Date: 20100604
  Receipt Date: 20100604
  Transmission Date: 20101027
  Serious: Yes (Other)
  Sender: FDA-Public Use
  Company Number: None

PATIENT
  Age: 50 Year
  Sex: Male
  Weight: 99.7913 kg

DRUGS (1)
  1. ST. JOHN'S WORT 300 MG GARDEN STATE NUTRITIONALS [Suspect]
     Dosage: 300 MG ONCE DAILY PO
     Route: 048
     Dates: start: 20100511, end: 20100512

REACTIONS (3)
  - DISORIENTATION [None]
  - HYPOAESTHESIA [None]
  - MOTOR DYSFUNCTION [None]
